FAERS Safety Report 13284983 (Version 1)
Quarter: 2017Q1

REPORT INFORMATION
  Report Type: Spontaneous
  Country: FR (occurrence: FR)
  Receive Date: 20170301
  Receipt Date: 20170301
  Transmission Date: 20170428
  Serious: Yes (Other)
  Sender: FDA-Public Use
  Company Number: FR-SHIRE-FR201703748

PATIENT

DRUGS (1)
  1. XAGRID [Suspect]
     Active Substance: ANAGRELIDE HYDROCHLORIDE
     Indication: ESSENTIAL THROMBOCYTHAEMIA
     Dosage: UNK, UNKNOWN
     Route: 048

REACTIONS (25)
  - Acute coronary syndrome [Unknown]
  - Supraventricular extrasystoles [Unknown]
  - Dyspnoea [Unknown]
  - Coronary artery thrombosis [Unknown]
  - Heart rate increased [Unknown]
  - Cardiac arrest [Unknown]
  - Pulmonary hypertension [Unknown]
  - Syncope [Unknown]
  - Bradycardia [Unknown]
  - Myocardial infarction [Unknown]
  - Torsade de pointes [Unknown]
  - Arteriosclerosis coronary artery [Unknown]
  - Hypertension [Unknown]
  - Angina unstable [Unknown]
  - Tachycardia [Unknown]
  - Cardiomegaly [Unknown]
  - Cardiac failure [Unknown]
  - Atrial fibrillation [Unknown]
  - Cardiogenic shock [Unknown]
  - Mitral valve incompetence [Unknown]
  - Cardiomyopathy [Unknown]
  - Ventricular extrasystoles [Unknown]
  - Hypokalaemia [Unknown]
  - Ejection fraction decreased [Unknown]
  - Palpitations [Unknown]
